FAERS Safety Report 4731970-X (Version None)
Quarter: 2005Q3

REPORT INFORMATION
  Report Type: 
  Country: None (occurrence: None)
  Receive Date: 20050725
  Receipt Date: 20041020
  Transmission Date: 20060218
  Serious: Yes (Life-Threatening, Hospitalization, Disabling)
  Sender: FDA-Public Use
  Company Number: WAES 0410USA03177

PATIENT
  Age: 79 Year
  Sex: Female

DRUGS (1)
  1. VIOXX [Suspect]
     Indication: BACK PAIN
     Dosage: PO
     Route: 048
     Dates: start: 20031101, end: 20031101

REACTIONS (1)
  - RENAL FAILURE [None]
